FAERS Safety Report 14233890 (Version 1)
Quarter: 2017Q4

REPORT INFORMATION
  Report Type: Spontaneous
  Country: US (occurrence: US)
  Receive Date: 20171128
  Receipt Date: 20171128
  Transmission Date: 20180321
  Serious: Yes (Hospitalization, Other)
  Sender: FDA-Public Use
  Company Number: US-BAXTER-2017BAX039454

PATIENT
  Age: 10 Year
  Sex: Female

DRUGS (42)
  1. PREDNISOLONE. [Suspect]
     Active Substance: PREDNISOLONE
     Indication: METASTASES TO BONE
     Dosage: UNDER DOSE REDUCED COPADM2 REGIMEN
     Route: 065
  2. PREDNISOLONE. [Suspect]
     Active Substance: PREDNISOLONE
     Indication: METASTASES TO PELVIS
     Dosage: UNDER DOSE REDUCED COPADM2 REGIMEN TAPER OVER THREE DAYS
     Route: 065
  3. METHOTREXATE. [Suspect]
     Active Substance: METHOTREXATE
     Indication: METASTASES TO KIDNEY
     Dosage: ONCE UNDER COPADM1 REGIMEN
     Route: 065
  4. DOXORUBICIN [Suspect]
     Active Substance: DOXORUBICIN
     Indication: METASTASES TO BONE
  5. CYTARABINE. [Suspect]
     Active Substance: CYTARABINE
     Indication: METASTASES TO PELVIS
  6. CYCLOPHOSPHAMIDE FOR INJECTION, USP [Suspect]
     Active Substance: CYCLOPHOSPHAMIDE
     Indication: METASTASES TO PANCREAS
     Dosage: DOSE REDUCED COPADM2 REGIMEN (6 DOSES)
     Route: 065
  7. PREDNISOLONE. [Suspect]
     Active Substance: PREDNISOLONE
     Indication: METASTASES TO KIDNEY
     Dosage: UNDER COPADM1 REGIMEN
     Route: 065
  8. HYDROCORTISONE. [Suspect]
     Active Substance: HYDROCORTISONE
     Indication: METASTASES TO KIDNEY
     Dosage: TWICE UNDER COPADM1 REGIMEN
     Route: 037
  9. HYDROCORTISONE. [Suspect]
     Active Substance: HYDROCORTISONE
     Indication: METASTASES TO PELVIS
     Dosage: ONCE UNDER DOSE REDUCED CYM1 REGIMEN WITH CYTARABINE
     Route: 037
  10. DOXORUBICIN [Suspect]
     Active Substance: DOXORUBICIN
     Indication: BURKITT^S LYMPHOMA STAGE III
     Dosage: ONCE UNDER COPADM1
     Route: 065
  11. CYCLOPHOSPHAMIDE FOR INJECTION, USP [Suspect]
     Active Substance: CYCLOPHOSPHAMIDE
     Indication: METASTASES TO PELVIS
  12. METHOTREXATE. [Suspect]
     Active Substance: METHOTREXATE
     Indication: BURKITT^S LYMPHOMA STAGE III
     Dosage: ONCE UNDER COP REGIMEN
     Route: 037
  13. HYDROCORTISONE. [Suspect]
     Active Substance: HYDROCORTISONE
     Indication: METASTASES TO PANCREAS
     Dosage: TWICE UNDER DOSE REDUCED COPADM2 REGIMEN
     Route: 037
  14. DOXORUBICIN [Suspect]
     Active Substance: DOXORUBICIN
     Indication: METASTASES TO KIDNEY
     Dosage: ONCE UNDER DOSE REDUCED COPADM2
     Route: 065
  15. CYTARABINE. [Suspect]
     Active Substance: CYTARABINE
     Indication: METASTASES TO KIDNEY
     Route: 037
  16. RITUXIMAB. [Suspect]
     Active Substance: RITUXIMAB
     Indication: METASTASES TO PANCREAS
  17. RITUXIMAB. [Suspect]
     Active Substance: RITUXIMAB
     Indication: METASTASES TO BONE
  18. CYCLOPHOSPHAMIDE FOR INJECTION, USP [Suspect]
     Active Substance: CYCLOPHOSPHAMIDE
     Indication: BURKITT^S LYMPHOMA STAGE III
     Dosage: COP REGIMEN
     Route: 065
  19. METHOTREXATE. [Suspect]
     Active Substance: METHOTREXATE
     Indication: METASTASES TO PELVIS
     Dosage: TWICE UNDER DOSE REDUCED COPADM2
     Route: 037
  20. METHOTREXATE. [Suspect]
     Active Substance: METHOTREXATE
     Dosage: ONCE UNDER DOSE REDUCED CYM1
     Route: 037
  21. HYDROCORTISONE. [Suspect]
     Active Substance: HYDROCORTISONE
     Indication: BURKITT^S LYMPHOMA STAGE III
     Dosage: ONCE UNDER COP REGIMEN
     Route: 037
  22. CYTARABINE. [Suspect]
     Active Substance: CYTARABINE
     Indication: METASTASES TO BONE
  23. CYCLOPHOSPHAMIDE FOR INJECTION, USP [Suspect]
     Active Substance: CYCLOPHOSPHAMIDE
     Indication: METASTASES TO KIDNEY
     Dosage: COPADM1 REGIMEN (6 DOSES)
     Route: 065
  24. VINCRISTINE [Suspect]
     Active Substance: VINCRISTINE
     Indication: METASTASES TO PELVIS
  25. METHOTREXATE. [Suspect]
     Active Substance: METHOTREXATE
     Indication: METASTASES TO BONE
     Dosage: ONCE UNDER DOSE REDUCED COPADM2
     Route: 065
  26. DOXORUBICIN [Suspect]
     Active Substance: DOXORUBICIN
     Indication: METASTASES TO PANCREAS
  27. RITUXIMAB. [Suspect]
     Active Substance: RITUXIMAB
     Indication: BURKITT^S LYMPHOMA STAGE III
     Dosage: EVERY 2-4 WEEKS FOR 5 TOTAL DOSES, STARTING BETWEEN COPADM1 AND COPADM2,
     Route: 065
  28. CYCLOPHOSPHAMIDE FOR INJECTION, USP [Suspect]
     Active Substance: CYCLOPHOSPHAMIDE
     Indication: METASTASES TO BONE
  29. METHOTREXATE. [Suspect]
     Active Substance: METHOTREXATE
     Indication: METASTASES TO PANCREAS
     Dosage: TWICE UNDER COPADM1 REGIMEN
     Route: 037
  30. METHOTREXATE. [Suspect]
     Active Substance: METHOTREXATE
     Dosage: ONCE UNDER DOSE REDUCED CYM1
     Route: 065
  31. DOXORUBICIN [Suspect]
     Active Substance: DOXORUBICIN
     Indication: METASTASES TO PELVIS
  32. VINCRISTINE [Suspect]
     Active Substance: VINCRISTINE
     Indication: METASTASES TO BONE
  33. PREDNISOLONE. [Suspect]
     Active Substance: PREDNISOLONE
     Indication: BURKITT^S LYMPHOMA STAGE III
     Dosage: UNDER COP REGIMEN
     Route: 065
  34. HYDROCORTISONE. [Suspect]
     Active Substance: HYDROCORTISONE
     Indication: METASTASES TO BONE
     Dosage: ONCE UNDER DOSE REDUCED CYM1 REGIMEN WITH METHOTREXATE
     Route: 037
  35. CYTARABINE. [Suspect]
     Active Substance: CYTARABINE
     Indication: BURKITT^S LYMPHOMA STAGE III
     Dosage: UNDER DOSE REDUCED CYM1 REGIMEN
     Route: 041
  36. RITUXIMAB. [Suspect]
     Active Substance: RITUXIMAB
     Indication: METASTASES TO KIDNEY
  37. VINCRISTINE [Suspect]
     Active Substance: VINCRISTINE
     Indication: BURKITT^S LYMPHOMA STAGE III
     Dosage: ONCE (COP REGIMEN)
     Route: 065
  38. VINCRISTINE [Suspect]
     Active Substance: VINCRISTINE
     Indication: METASTASES TO KIDNEY
     Dosage: ONCE (COPADM1 REGIMEN)
     Route: 065
  39. VINCRISTINE [Suspect]
     Active Substance: VINCRISTINE
     Indication: METASTASES TO PANCREAS
     Dosage: ONCE (DOSE REDUCED COPADM2 REGIMEN)
     Route: 065
  40. PREDNISOLONE. [Suspect]
     Active Substance: PREDNISOLONE
     Indication: METASTASES TO PANCREAS
     Dosage: UNDER COPADM1 REGIMEN TAPER OVER THREE DAYS
     Route: 065
  41. CYTARABINE. [Suspect]
     Active Substance: CYTARABINE
     Indication: METASTASES TO PANCREAS
  42. RITUXIMAB. [Suspect]
     Active Substance: RITUXIMAB
     Indication: METASTASES TO PELVIS

REACTIONS (7)
  - Febrile neutropenia [Recovered/Resolved]
  - Small intestinal obstruction [Unknown]
  - Abdominal compartment syndrome [Unknown]
  - Sepsis [Unknown]
  - Renal failure [Unknown]
  - Drug intolerance [Unknown]
  - Hypertension [Unknown]
